FAERS Safety Report 8827619 (Version 2)
Quarter: 2012Q4

REPORT INFORMATION
  Report Type: 
  Country: US (occurrence: US)
  Receive Date: 20121005
  Receipt Date: 20121012
  Transmission Date: 20130627
  Serious: Yes (Other)
  Sender: FDA-Public Use
  Company Number: CHPA2012US021095

PATIENT
  Sex: Male

DRUGS (1)
  1. VOLTAREN GEL [Suspect]
     Indication: INFLAMMATION
     Dosage: Unk, Unk
     Route: 061
     Dates: start: 20120929, end: 20120929

REACTIONS (4)
  - Lip swelling [Recovered/Resolved]
  - Off label use [Unknown]
  - Wrong technique in drug usage process [Unknown]
  - Drug dispensing error [Unknown]
